FAERS Safety Report 7792939-4 (Version None)
Quarter: 2011Q4

REPORT INFORMATION
  Report Type: 
  Country: None (occurrence: None)
  Receive Date: 20111003
  Receipt Date: 20110922
  Transmission Date: 20120403
  Serious: Yes (Hospitalization)
  Sender: FDA-Public Use
  Company Number: PHFR2011IE05366

PATIENT
  Sex: Male

DRUGS (4)
  1. CLOZAPINE [Suspect]
     Dosage: 775 MG, UNK
     Route: 048
     Dates: start: 20110911
  2. CLOZAPINE [Suspect]
     Indication: SCHIZOPHRENIA
     Dosage: 775 MG, UNK
     Route: 048
     Dates: start: 20021227
  3. ANTIPSYCHOTICS [Concomitant]
     Route: 030
  4. CLOZAPINE [Suspect]
     Route: 048
     Dates: start: 20110922

REACTIONS (3)
  - INCORRECT DOSE ADMINISTERED [None]
  - SOMNOLENCE [None]
  - BLOOD CREATINE PHOSPHOKINASE INCREASED [None]
